FAERS Safety Report 19288104 (Version 1)
Quarter: 2021Q2

REPORT INFORMATION
  Report Type: Spontaneous
  Country: US (occurrence: US)
  Receive Date: 20210522
  Receipt Date: 20210522
  Transmission Date: 20210717
  Serious: No
  Sender: FDA-Public Use
  Company Number: US-JNJFOC-20210529844

PATIENT
  Age: 50 Year
  Sex: Male
  Weight: 69.46 kg

DRUGS (1)
  1. ZYRTEC [Suspect]
     Active Substance: CETIRIZINE HYDROCHLORIDE
     Indication: MULTIPLE ALLERGIES
     Dosage: DATE OF LAST ADMIN: 12?MAY?2021
     Route: 048
     Dates: start: 20210501

REACTIONS (1)
  - Drug ineffective [Unknown]
